FAERS Safety Report 11766063 (Version 1)
Quarter: 2015Q4

REPORT INFORMATION
  Report Type: Spontaneous
  Country: IT (occurrence: IT)
  Receive Date: 20151122
  Receipt Date: 20151122
  Transmission Date: 20160304
  Serious: Yes (Other)
  Sender: FDA-Public Use
  Company Number: IT-TEVA-609509ACC

PATIENT
  Age: 53 Year
  Sex: Female
  Weight: 65 kg

DRUGS (7)
  1. PERJETA - 420 MG CONCENTRATO PER SOLUZIONE PER INFUSIONE [Concomitant]
     Indication: BREAST NEOPLASM
     Dosage: 420 MG
     Route: 042
     Dates: start: 20150509, end: 20151103
  2. PANTORC [Concomitant]
     Active Substance: PANTOPRAZOLE SODIUM
     Indication: PREMEDICATION
     Dosage: 40 MG
     Route: 042
     Dates: start: 20150525, end: 20150818
  3. ONDANSETRONE HIKMA - 8 MG/4 ML SOLUZIONE INIETTABILE [Concomitant]
     Indication: PREMEDICATION
     Dosage: 8 MG
     Route: 042
     Dates: start: 20150525, end: 20150818
  4. PACLITAXEL TEVA - 6 MG/ML CONCENTRATO PER SOLUZIONE PER INFUSIONE [Suspect]
     Active Substance: PACLITAXEL
     Indication: BREAST NEOPLASM
     Dosage: 144 MG WEEKLY
     Route: 042
     Dates: start: 20150525, end: 20150818
  5. TRIMETON - 10 MG/1 ML SOLUZIONE INIETTABILE [Concomitant]
     Indication: PREMEDICATION
     Dosage: 10 MG
     Route: 042
     Dates: start: 20150525, end: 20150818
  6. FLEBOCORTID RICHTER [Concomitant]
     Indication: PREMEDICATION
     Dosage: 250 MG
     Route: 042
     Dates: start: 20150525, end: 20150818
  7. HERCEPTIN - 150 MG POLVERE PER CONCENTRATO PER SOLUZIONE PER INFUSIONE [Concomitant]
     Indication: BREAST NEOPLASM
     Dosage: 390 MG
     Route: 042
     Dates: start: 20150519, end: 20151103

REACTIONS (2)
  - Onychalgia [Recovering/Resolving]
  - Neurotoxicity [Recovering/Resolving]

NARRATIVE: CASE EVENT DATE: 20150901
